FAERS Safety Report 10905523 (Version 1)
Quarter: 2015Q1

REPORT INFORMATION
  Report Type: Spontaneous
  Country: US (occurrence: US)
  Receive Date: 20150311
  Receipt Date: 20150311
  Transmission Date: 20150721
  Serious: No
  Sender: FDA-Public Use
  Company Number: US-PFIZER INC-2015082624

PATIENT
  Age: 38 Year
  Sex: Female
  Weight: 122 kg

DRUGS (1)
  1. LYRICA [Suspect]
     Active Substance: PREGABALIN
     Indication: RESTLESS LEGS SYNDROME
     Dosage: 50 MG, 1X/DAY-AT NIGHT
     Route: 048
     Dates: start: 2014, end: 20150301

REACTIONS (2)
  - Musculoskeletal discomfort [Recovering/Resolving]
  - Tension headache [Recovering/Resolving]
